FAERS Safety Report 4876271-4 (Version None)
Quarter: 2005Q4

REPORT INFORMATION
  Report Type: 
  Country: None (occurrence: None)
  Receive Date: 20051206
  Receipt Date: 20050809
  Transmission Date: 20060501
  Serious: No
  Sender: FDA-Public Use
  Company Number: USA0508105072

PATIENT
  Age: 54 Year
  Sex: Male

DRUGS (6)
  1. CYMBALTA [Suspect]
     Indication: NEURALGIA
     Dosage: 30 MG DAY
     Dates: start: 20050809
  2. METFORMIN [Concomitant]
  3. ARTHROTEC [Concomitant]
  4. TRAZODONE [Concomitant]
  5. IBUPROFEN [Concomitant]
  6. DURAGESIC-100 [Concomitant]

REACTIONS (1)
  - BLOOD GLUCOSE INCREASED [None]
